FAERS Safety Report 16933264 (Version 2)
Quarter: 2019Q4

REPORT INFORMATION
  Report Type: Report from Study
  Country: None (occurrence: BR)
  Receive Date: 20191018
  Receipt Date: 20191019
  Transmission Date: 20200122
  Serious: Yes (Death, Hospitalization, Other)
  Sender: FDA-Public Use
  Company Number: BR-ABBVIE-19K-020-2969295-00

PATIENT
  Age: 72 Year
  Sex: Male
  Weight: 80 kg

DRUGS (1)
  1. HUMIRA [Suspect]
     Active Substance: ADALIMUMAB
     Indication: PSORIATIC ARTHROPATHY
     Route: 058
     Dates: start: 20100801

REACTIONS (5)
  - Myocardial infarction [Fatal]
  - Myocardial infarction [Unknown]
  - Cardiac arrest [Unknown]
  - Cardiac arrest [Unknown]
  - Malaise [Unknown]

NARRATIVE: CASE EVENT DATE: 20190716
